FAERS Safety Report 7587161-0 (Version None)
Quarter: 2011Q3

REPORT INFORMATION
  Report Type: 
  Country: None (occurrence: None)
  Receive Date: 20110701
  Receipt Date: 20110621
  Transmission Date: 20111222
  Serious: Yes (Other)
  Sender: FDA-Public Use
  Company Number: US-AMGEN-USASP2011031700

PATIENT
  Age: 57 Year
  Sex: Female

DRUGS (3)
  1. ENBREL [Suspect]
     Indication: RHEUMATOID ARTHRITIS
     Dosage: 25 MG, 2 TIMES/WK
     Dates: start: 20030129
  2. METFORMIN HCL [Concomitant]
  3. ENBREL [Suspect]
     Indication: FIBROMYALGIA

REACTIONS (10)
  - ABDOMINAL PAIN [None]
  - ENERGY INCREASED [None]
  - POLYURIA [None]
  - SOMNOLENCE [None]
  - NERVOUSNESS [None]
  - WEIGHT DECREASED [None]
  - INCREASED APPETITE [None]
  - ASTHENIA [None]
  - PRESYNCOPE [None]
  - HYPOGLYCAEMIA [None]
